FAERS Safety Report 12972790 (Version 1)
Quarter: 2016Q4

REPORT INFORMATION
  Report Type: Report from Study
  Country: None (occurrence: US)
  Receive Date: 20161124
  Receipt Date: 20161124
  Transmission Date: 20170207
  Serious: Yes (Hospitalization, Other)
  Sender: FDA-Public Use
  Company Number: US-ABBVIE-16K-163-1785028-00

PATIENT
  Age: 54 Year
  Sex: Female

DRUGS (1)
  1. HUMIRA [Suspect]
     Active Substance: ADALIMUMAB
     Indication: CROHN^S DISEASE
     Route: 058
     Dates: start: 20130719, end: 201610

REACTIONS (16)
  - Headache [Unknown]
  - Oesophageal oedema [Unknown]
  - Stress [Not Recovered/Not Resolved]
  - Crohn^s disease [Recovered/Resolved]
  - Blood potassium decreased [Recovered/Resolved]
  - Device issue [Unknown]
  - Blood magnesium decreased [Recovered/Resolved]
  - Decreased appetite [Not Recovered/Not Resolved]
  - Device issue [Unknown]
  - Nausea [Recovered/Resolved]
  - Injection site pain [Recovered/Resolved]
  - Migraine [Unknown]
  - Weight decreased [Not Recovered/Not Resolved]
  - Dehydration [Recovered/Resolved]
  - Dysphagia [Recovered/Resolved]
  - Incorrect dose administered [Not Recovered/Not Resolved]

NARRATIVE: CASE EVENT DATE: 201605
